FAERS Safety Report 15807121 (Version 1)
Quarter: 2019Q1

REPORT INFORMATION
  Report Type: Report from Study
  Country: US (occurrence: US)
  Receive Date: 20190110
  Receipt Date: 20190110
  Transmission Date: 20190417
  Serious: Yes (Other)
  Sender: FDA-Public Use
  Company Number: US-MYLANLABS-2019M1000687

PATIENT
  Age: 32 Year
  Sex: Female
  Weight: 72.56 kg

DRUGS (1)
  1. GLATIRAMER ACETATE INJECTION [Suspect]
     Active Substance: GLATIRAMER ACETATE
     Indication: RELAPSING-REMITTING MULTIPLE SCLEROSIS
     Dosage: 40 MILLIGRAM, 3XW
     Route: 058
     Dates: start: 201810

REACTIONS (5)
  - Headache [Unknown]
  - Injection site bruising [Unknown]
  - Drug ineffective [Not Recovered/Not Resolved]
  - Central nervous system lesion [Unknown]
  - Injection site mass [Unknown]

NARRATIVE: CASE EVENT DATE: 201810
